FAERS Safety Report 6123987-8 (Version None)
Quarter: 2009Q1

REPORT INFORMATION
  Report Type: 
  Country: None (occurrence: None)
  Receive Date: 20090318
  Receipt Date: 20090318
  Transmission Date: 20090719
  Serious: Yes (Life-Threatening)
  Sender: FDA-Public Use
  Company Number: None

PATIENT
  Age: 64 Year
  Sex: Female
  Weight: 56.246 kg

DRUGS (1)
  1. RETINOL [Suspect]
     Dates: start: 20090226

REACTIONS (3)
  - ANAPHYLACTIC REACTION [None]
  - PRESYNCOPE [None]
  - SELF-MEDICATION [None]
